FAERS Safety Report 4688754-0 (Version None)
Quarter: 2005Q2

REPORT INFORMATION
  Report Type: 
  Country: None (occurrence: None)
  Receive Date: 20050609
  Receipt Date: 20050609
  Transmission Date: 20051028
  Serious: Yes (Hospitalization)
  Sender: FDA-Public Use
  Company Number: None

PATIENT
  Sex: Male
  Weight: 69 kg

DRUGS (1)
  1. BACTRIM [Suspect]
     Indication: PNEUMONIA
     Dates: start: 20050201

REACTIONS (6)
  - ARTHRALGIA [None]
  - DYSPNOEA [None]
  - MYALGIA [None]
  - PYREXIA [None]
  - RASH [None]
  - VOMITING [None]
